FAERS Safety Report 25887573 (Version 1)
Quarter: 2025Q4

REPORT INFORMATION
  Report Type: Other
  Country: CN (occurrence: CN)
  Receive Date: 20251007
  Receipt Date: 20251007
  Transmission Date: 20260118
  Serious: Yes (Hospitalization)
  Sender: QILU PHARMACEUTICAL
  Company Number: CN-QILU PHARMACEUTICAL CO.LTD.-QLU-000246-2025

PATIENT
  Age: 59 Year
  Sex: Female
  Weight: 40 kg

DRUGS (4)
  1. EXEMESTANE [Suspect]
     Active Substance: EXEMESTANE
     Indication: Breast cancer
     Dosage: 25 MG DAILY
     Route: 048
     Dates: start: 20250807, end: 20250828
  2. EXEMESTANE [Suspect]
     Active Substance: EXEMESTANE
     Indication: Breast cancer
  3. DAPOXETINE HYDROCHLORIDE [Suspect]
     Active Substance: DAPOXETINE HYDROCHLORIDE
     Indication: Breast cancer
     Dosage: 125 MG ONCE DAILY
     Route: 048
     Dates: start: 20250807, end: 20250828
  4. DAPOXETINE HYDROCHLORIDE [Suspect]
     Active Substance: DAPOXETINE HYDROCHLORIDE
     Indication: Breast cancer

REACTIONS (2)
  - White blood cell count decreased [Recovering/Resolving]
  - Platelet count decreased [Recovering/Resolving]

NARRATIVE: CASE EVENT DATE: 20250902
